FAERS Safety Report 9132434 (Version 3)
Quarter: 2013Q2

REPORT INFORMATION
  Report Type: Report from Study
  Country: BR (occurrence: BR)
  Receive Date: 20130301
  Receipt Date: 20130409
  Transmission Date: 20140414
  Serious: Yes (Other)
  Sender: FDA-Public Use
  Company Number: BR-ROCHE-1192790

PATIENT
  Age: 46 Year
  Sex: Female
  Weight: 41 kg

DRUGS (11)
  1. ACTEMRA [Suspect]
     Indication: RHEUMATOID ARTHRITIS
     Dosage: LAST INFUSION 01/JAN/2013
     Route: 042
     Dates: start: 20111202, end: 20130207
  2. ACTEMRA [Suspect]
     Route: 065
     Dates: start: 20120614
  3. ACTEMRA [Suspect]
     Route: 065
     Dates: start: 20121017
  4. ACTEMRA [Suspect]
     Route: 065
     Dates: start: 20121117
  5. ACTEMRA [Suspect]
     Route: 065
     Dates: start: 20121217
  6. ACTEMRA [Suspect]
     Route: 065
     Dates: start: 20130128
  7. PREDNISONE [Concomitant]
  8. FOLIC ACID [Concomitant]
  9. METHOTREXATE [Concomitant]
     Route: 048
  10. ENALAPRIL [Concomitant]
  11. METICORTEN [Concomitant]
     Route: 048

REACTIONS (3)
  - Urinary tract infection [Recovered/Resolved]
  - Pneumonitis [Unknown]
  - Rheumatoid arthritis [Unknown]
